FAERS Safety Report 13784399 (Version 2)
Quarter: 2017Q3

REPORT INFORMATION
  Report Type: Spontaneous
  Country: JP (occurrence: JP)
  Receive Date: 20170724
  Receipt Date: 20170726
  Transmission Date: 20171127
  Serious: Yes (Death)
  Sender: FDA-Public Use
  Company Number: JP-BAXTER-2017BAX028505

PATIENT
  Age: 87 Year
  Sex: Female

DRUGS (5)
  1. PIRARUBICIN HYDROCHLORIDE [Suspect]
     Active Substance: PIRARUBICIN HYDROCHLORIDE
     Indication: DIFFUSE LARGE B-CELL LYMPHOMA
     Dosage: TWO THIRDS OF THE PRESCRIBED DOSE
     Route: 065
  2. PREDONINE [Suspect]
     Active Substance: PREDNISOLONE
     Indication: DIFFUSE LARGE B-CELL LYMPHOMA
     Dosage: TWO THIRDS OF THE PRESCRIBED DOSE
     Route: 065
  3. ENDOXAN LYOPHILISAT [Suspect]
     Active Substance: CYCLOPHOSPHAMIDE
     Indication: DIFFUSE LARGE B-CELL LYMPHOMA
     Dosage: TWO THIRDS OF THE PRESCRIBED DOSE
     Route: 065
  4. RITUXIMAB (GENETICAL RECOMBINATION) [Suspect]
     Active Substance: RITUXIMAB
     Indication: DIFFUSE LARGE B-CELL LYMPHOMA
     Dosage: TWO THIRDS OF THE PRESCRIBED DOSE
     Route: 065
  5. VINCRISTINE SULFATE. [Suspect]
     Active Substance: VINCRISTINE SULFATE
     Indication: DIFFUSE LARGE B-CELL LYMPHOMA
     Dosage: TWO THIRDS OF THE PRESCRIBED DOSE
     Route: 065

REACTIONS (1)
  - Myocardial infarction [Fatal]
